FAERS Safety Report 16313962 (Version 2)
Quarter: 2019Q2

REPORT INFORMATION
  Report Type: Spontaneous
  Country: BR (occurrence: BR)
  Receive Date: 20190515
  Receipt Date: 20190530
  Transmission Date: 20190711
  Serious: Yes (Hospitalization, Other)
  Sender: FDA-Public Use
  Company Number: BR-BRACCO-2019BR02285

PATIENT
  Age: 59 Year
  Sex: Male

DRUGS (7)
  1. SALINE                             /00075401/ [Suspect]
     Active Substance: SODIUM CHLORIDE
     Indication: COMPUTERISED TOMOGRAM ABDOMEN
     Dosage: 30 ML, SINGLE
     Route: 042
     Dates: start: 20190507, end: 20190507
  2. AAS [Concomitant]
     Active Substance: ASPIRIN
     Dosage: 100 MG
  3. IOPAMIRON [Suspect]
     Active Substance: IOPAMIDOL
     Indication: COMPUTERISED TOMOGRAM ABDOMEN
     Dosage: 70 ML, SINGLE
     Route: 042
     Dates: start: 20190507, end: 20190507
  4. ATENOLOL. [Concomitant]
     Active Substance: ATENOLOL
     Dosage: 25 MG
  5. CIPROFIBRATE [Concomitant]
     Active Substance: CIPROFIBRATE
     Dosage: 100 MG
  6. SIMVASTATIN. [Concomitant]
     Active Substance: SIMVASTATIN
     Dosage: 40 MG
  7. METFORMIN [Concomitant]
     Active Substance: METFORMIN HYDROCHLORIDE
     Indication: DIABETES MELLITUS
     Dosage: 500 MG

REACTIONS (6)
  - Hyperhidrosis [Recovered/Resolved]
  - Hyperthermia [Not Recovered/Not Resolved]
  - Arrhythmia [Recovered/Resolved]
  - Hypoglycaemia [Recovered/Resolved]
  - Tremor [Recovered/Resolved]
  - Cyanosis [Recovered/Resolved]

NARRATIVE: CASE EVENT DATE: 20190507
